FAERS Safety Report 21570893 (Version 1)
Quarter: 2022Q4

REPORT INFORMATION
  Report Type: Report from Study
  Country: US (occurrence: US)
  Receive Date: 20221109
  Receipt Date: 20221109
  Transmission Date: 20230113
  Serious: Yes (Death, Other)
  Sender: FDA-Public Use
  Company Number: US-BRISTOL-MYERS SQUIBB COMPANY-2022-133187

PATIENT
  Age: 64 Year
  Sex: Female
  Weight: 91.4 kg

DRUGS (15)
  1. POMALYST [Suspect]
     Active Substance: POMALIDOMIDE
     Indication: Plasma cell myeloma
     Route: 048
     Dates: start: 20220331
  2. ATENOLOL [Concomitant]
     Active Substance: ATENOLOL
  3. AMITRIPTYLINE [Concomitant]
     Active Substance: AMITRIPTYLINE
  4. OXYCODONE [Concomitant]
     Active Substance: OXYCODONE
  5. LOTRONEX [Concomitant]
     Active Substance: ALOSETRON HYDROCHLORIDE
  6. ONDANSETRON [Concomitant]
     Active Substance: ONDANSETRON
  7. MECLIZINE [Concomitant]
     Active Substance: MECLIZINE HYDROCHLORIDE
  8. CYCLOBENZAPRINE [Concomitant]
     Active Substance: CYCLOBENZAPRINE
  9. DEXILANT [Concomitant]
     Active Substance: DEXLANSOPRAZOLE
  10. ACYCLOVIR [Concomitant]
     Active Substance: ACYCLOVIR
  11. CHOLECALCIFEROL [Concomitant]
     Active Substance: CHOLECALCIFEROL
  12. VITAMIN C [Concomitant]
     Active Substance: ASCORBIC ACID
  13. DEXAMETHASONE [Concomitant]
     Active Substance: DEXAMETHASONE
  14. IRON [Concomitant]
     Active Substance: IRON
  15. CALCIUM [Concomitant]
     Active Substance: CALCIUM

REACTIONS (1)
  - Death [Fatal]

NARRATIVE: CASE EVENT DATE: 20220427
